FAERS Safety Report 25923000 (Version 2)
Quarter: 2025Q4

REPORT INFORMATION
  Report Type: Spontaneous
  Country: US (occurrence: US)
  Receive Date: 20251015
  Receipt Date: 20251110
  Transmission Date: 20260117
  Serious: Yes (Other)
  Sender: ORPHALAN
  Company Number: US-ORPHALAN-US-ORP-25-00181

PATIENT

DRUGS (2)
  1. CUVRIOR [Suspect]
     Active Substance: TRIENTINE TETRAHYDROCHLORIDE
     Indication: Hepato-lenticular degeneration
     Dosage: 600 MILLIGRAM, IN THE MORNING
     Route: 048
     Dates: start: 20240405
  2. CUVRIOR [Suspect]
     Active Substance: TRIENTINE TETRAHYDROCHLORIDE
     Dosage: 300 MILLIGRAM, IN THE EVENING
     Route: 048
     Dates: start: 20240405

REACTIONS (2)
  - Joint injury [Not Recovered/Not Resolved]
  - Pruritus [Not Recovered/Not Resolved]
